FAERS Safety Report 24817253 (Version 2)
Quarter: 2025Q1

REPORT INFORMATION
  Report Type: Spontaneous
  Country: IL (occurrence: IL)
  Receive Date: 20250108
  Receipt Date: 20250305
  Transmission Date: 20250409
  Serious: Yes (Other)
  Sender: TEVA
  Company Number: IL-TEVA-VS-3283870

PATIENT
  Age: 83 Year
  Sex: Female

DRUGS (2)
  1. QUETIAPINE [Suspect]
     Active Substance: QUETIAPINE
     Indication: Sleep disorder
     Route: 065
  2. SEROQUEL [Concomitant]
     Active Substance: QUETIAPINE FUMARATE
     Indication: Sleep disorder
     Route: 065

REACTIONS (5)
  - Self-destructive behaviour [Unknown]
  - Drug ineffective [Unknown]
  - Paradoxical drug reaction [Unknown]
  - Insomnia [Unknown]
  - Restlessness [Unknown]
